FAERS Safety Report 6984967-3 (Version None)
Quarter: 2010Q3

REPORT INFORMATION
  Report Type: 
  Country: None (occurrence: None)
  Receive Date: 20100915
  Receipt Date: 20100907
  Transmission Date: 20110219
  Serious: Yes (Other)
  Sender: FDA-Public Use
  Company Number: BE-BAYER-201038779GPV

PATIENT
  Age: 36 Year
  Sex: Male

DRUGS (1)
  1. AVELOX [Suspect]
     Indication: EAR INFECTION

REACTIONS (4)
  - INTRAOCULAR PRESSURE INCREASED [None]
  - IRIS HYPOPIGMENTATION [None]
  - UVEITIS [None]
  - VISUAL IMPAIRMENT [None]
